FAERS Safety Report 4677425-2 (Version None)
Quarter: 2005Q2

REPORT INFORMATION
  Report Type: 
  Country: None (occurrence: None)
  Receive Date: 20050531
  Receipt Date: 20050510
  Transmission Date: 20051028
  Serious: Yes (Life-Threatening, Hospitalization, Disabling)
  Sender: FDA-Public Use
  Company Number: US-BOEHRINGER INGELHEIM PHARMACEUTICALS, INC.-2005-BP-07860BP

PATIENT
  Age: 64 Year
  Sex: Male
  Weight: 68.5 kg

DRUGS (5)
  1. MICARDIS [Suspect]
     Indication: HYPERTENSION
     Route: 048
  2. MICARDIS [Suspect]
     Indication: CARDIAC FAILURE CONGESTIVE
     Route: 048
  3. COREG [Concomitant]
     Dosage: 25 MG BID
  4. HYDRALAZINE HCL [Concomitant]
  5. NORVASC [Concomitant]
     Dosage: 5 MG BID

REACTIONS (4)
  - BLOOD CREATININE INCREASED [None]
  - CARDIAC FAILURE CONGESTIVE [None]
  - POLYURIA [None]
  - RENAL ARTERY STENOSIS [None]
